FAERS Safety Report 9031716 (Version 1)
Quarter: 2013Q1

REPORT INFORMATION
  Report Type: Spontaneous
  Country: JP (occurrence: JP)
  Receive Date: 20130124
  Receipt Date: 20130124
  Transmission Date: 20140127
  Serious: Yes (Other)
  Sender: FDA-Public Use
  Company Number: JP-PFIZER INC-2013018692

PATIENT
  Age: 62 Year
  Sex: Male

DRUGS (6)
  1. METHYLPREDNISOLONE SODIUM SUCCINATE [Suspect]
     Indication: INTERSTITIAL LUNG DISEASE
     Dosage: 1000 MG, UNK
  2. DEXAMETHASONE SODIUM PHOSPHATE [Suspect]
     Indication: PROSTATE CANCER
     Dosage: 8 MG, UNK,1ST DAY OF ILLNESS
  3. DOCETAXEL [Suspect]
     Indication: PROSTATE CANCER
     Dosage: 72 MG/ML, 125MG/BODY
     Dates: start: 201101
  4. DOCETAXEL [Suspect]
     Dosage: UNK
     Dates: start: 201102
  5. PREDNISOLONE [Suspect]
     Indication: PROSTATE CANCER
     Dosage: UNK
     Route: 048
  6. PREDNISOLONE [Suspect]
     Dosage: UNK

REACTIONS (3)
  - Diabetic coma [Recovered/Resolved]
  - Interstitial lung disease [Recovered/Resolved]
  - Metabolic acidosis [Recovered/Resolved]
